FAERS Safety Report 10088925 (Version 1)
Quarter: 2014Q2

REPORT INFORMATION
  Report Type: Report from Study
  Country: US (occurrence: US)
  Receive Date: 20140421
  Receipt Date: 20140421
  Transmission Date: 20141212
  Serious: Yes (Hospitalization)
  Sender: FDA-Public Use
  Company Number: US-MERCK-1404USA010576

PATIENT
  Age: 58 Year
  Sex: Female

DRUGS (2)
  1. DECADRON [Suspect]
     Indication: PLASMA CELL MYELOMA
     Dosage: UNK
  2. REVLIMID [Suspect]
     Indication: PLASMA CELL MYELOMA
     Dosage: UNK
     Route: 048

REACTIONS (2)
  - Pneumonia [Unknown]
  - Neutropenia [Unknown]
